FAERS Safety Report 4847276-4 (Version None)
Quarter: 2005Q4

REPORT INFORMATION
  Report Type: 
  Country: None (occurrence: None)
  Receive Date: 20051205
  Receipt Date: 20051205
  Transmission Date: 20060501
  Serious: Yes (Other)
  Sender: FDA-Public Use
  Company Number: None

PATIENT
  Age: 45 Year
  Sex: Female
  Weight: 58.9676 kg

DRUGS (2)
  1. NEURONTIN [Suspect]
     Indication: OFF LABEL USE
     Dosage: 300MG   TID   PO
     Route: 048
     Dates: start: 20041101, end: 20050510
  2. NEURONTIN [Suspect]
     Indication: PERSONALITY DISORDER
     Dosage: 300MG   TID   PO
     Route: 048
     Dates: start: 20041101, end: 20050510

REACTIONS (6)
  - COGNITIVE DISORDER [None]
  - DEMENTIA [None]
  - FORMICATION [None]
  - OFF LABEL USE [None]
  - PANIC ATTACK [None]
  - SUICIDAL IDEATION [None]
